FAERS Safety Report 19730679 (Version 3)
Quarter: 2022Q1

REPORT INFORMATION
  Report Type: Spontaneous
  Country: US (occurrence: US)
  Receive Date: 20210820
  Receipt Date: 20220125
  Transmission Date: 20220423
  Serious: No
  Sender: FDA-Public Use
  Company Number: US-BIOGEN-2021BI01040462

PATIENT
  Sex: Male

DRUGS (6)
  1. TECFIDERA [Suspect]
     Active Substance: DIMETHYL FUMARATE
     Indication: Multiple sclerosis
     Route: 065
     Dates: start: 20130513, end: 20130521
  2. TECFIDERA [Suspect]
     Active Substance: DIMETHYL FUMARATE
     Route: 065
     Dates: start: 20160413, end: 20210101
  3. MISOPROSTOL [Concomitant]
     Active Substance: MISOPROSTOL
     Route: 065
  4. OXTELLAR XR [Concomitant]
     Active Substance: OXCARBAZEPINE
     Route: 065
  5. LISINOPRIL [Concomitant]
     Active Substance: LISINOPRIL
     Route: 065
  6. CIALIS [Concomitant]
     Active Substance: TADALAFIL
     Route: 065

REACTIONS (9)
  - Inappropriate schedule of product administration [Unknown]
  - B-lymphocyte count decreased [Unknown]
  - Gastrooesophageal reflux disease [Recovered/Resolved with Sequelae]
  - T-lymphocyte count decreased [Unknown]
  - Sinusitis [Unknown]
  - Dyspepsia [Unknown]
  - Flushing [Unknown]
  - Lymphocyte count decreased [Unknown]
  - Abdominal pain [Recovered/Resolved with Sequelae]
